FAERS Safety Report 17680071 (Version 1)
Quarter: 2020Q2

REPORT INFORMATION
  Report Type: Spontaneous
  Country: CA (occurrence: CA)
  Receive Date: 20200417
  Receipt Date: 20200417
  Transmission Date: 20200714
  Serious: Yes (Hospitalization, Other)
  Sender: FDA-Public Use
  Company Number: NVSC2020CA101249

PATIENT
  Age: 72 Year
  Sex: Male

DRUGS (2)
  1. LIPITOR [Suspect]
     Active Substance: ATORVASTATIN CALCIUM
     Indication: PRODUCT USED FOR UNKNOWN INDICATION
     Dosage: UNK
     Route: 065
  2. SANDOSTATIN LAR DEPOT [Suspect]
     Active Substance: OCTREOTIDE ACETATE
     Indication: NEUROENDOCRINE CARCINOMA
     Dosage: 30 MG, QMO
     Route: 030

REACTIONS (19)
  - Fracture [Unknown]
  - Fall [Unknown]
  - Malignant neoplasm progression [Unknown]
  - Pain [Unknown]
  - Bite [Unknown]
  - Erythema [Unknown]
  - Sluggishness [Unknown]
  - Heart rate decreased [Unknown]
  - Hypoacusis [Unknown]
  - Neoplasm progression [Unknown]
  - Fatigue [Unknown]
  - Blood pressure systolic increased [Unknown]
  - Blood cholesterol increased [Unknown]
  - Oesophageal spasm [Unknown]
  - Inappropriate schedule of product administration [Unknown]
  - Incorrect dose administered [Unknown]
  - Myalgia [Unknown]
  - Blood pressure increased [Unknown]
  - Chest pain [Unknown]
